FAERS Safety Report 24555169 (Version 1)
Quarter: 2024Q4

REPORT INFORMATION
  Report Type: Spontaneous
  Country: DE (occurrence: DE)
  Receive Date: 20241028
  Receipt Date: 20241028
  Transmission Date: 20250115
  Serious: Yes (Other)
  Sender: RANBAXY
  Company Number: DE-SUN PHARMACEUTICAL INDUSTRIES LTD-2024RR-475408

PATIENT
  Age: 43 Year
  Sex: Male
  Weight: 84 kg

DRUGS (3)
  1. PANTOPRAZOLE [Suspect]
     Active Substance: PANTOPRAZOLE
     Indication: Abdominal discomfort
     Dosage: UP TO 2X 40 MG, CURRENTLY 1X 40 MG
     Route: 048
     Dates: start: 20240103, end: 20240903
  2. METAMIZOLE [Suspect]
     Active Substance: METAMIZOLE
     Indication: Analgesic therapy
     Dosage: 1000 MG UP TO 4X DAILY, NOT DAILY
     Route: 048
  3. AVALGLUCOSIDASE ALFA [Suspect]
     Active Substance: AVALGLUCOSIDASE ALFA
     Indication: Glycogen storage disease type II
     Dosage: 1700 MG ALLE 14 TAGE
     Route: 040
     Dates: start: 20230103

REACTIONS (6)
  - Leukopenia [Recovering/Resolving]
  - Thrombocytopenia [Recovering/Resolving]
  - Loss of consciousness [Unknown]
  - Dyspnoea [Unknown]
  - White blood cell count decreased [Unknown]
  - Abdominal discomfort [Recovering/Resolving]

NARRATIVE: CASE EVENT DATE: 20240101
